FAERS Safety Report 7765688-6 (Version None)
Quarter: 2011Q3

REPORT INFORMATION
  Report Type: 
  Country: None (occurrence: None)
  Receive Date: 20110921
  Receipt Date: 20110914
  Transmission Date: 20111222
  Serious: Yes (Other)
  Sender: FDA-Public Use
  Company Number: US-ABBOTT-11P-163-0854891-00

PATIENT
  Sex: Male

DRUGS (5)
  1. ANDROGEL [Suspect]
     Dates: start: 20110819
  2. ASPIRIN [Concomitant]
     Indication: CARDIAC DISORDER
  3. FLOMAX [Concomitant]
     Indication: PROSTATOMEGALY
  4. HYDROCHLOROTHIAZIDE [Concomitant]
     Indication: HYPERTENSION
  5. ANDROGEL [Suspect]
     Indication: BLOOD TESTOSTERONE DECREASED
     Dates: start: 20090101, end: 20110501

REACTIONS (3)
  - CONSTIPATION [None]
  - FATIGUE [None]
  - CAROTID ARTERY OCCLUSION [None]
